FAERS Safety Report 14475510 (Version 1)
Quarter: 2018Q1

REPORT INFORMATION
  Report Type: Spontaneous
  Country: US (occurrence: US)
  Receive Date: 20180131
  Receipt Date: 20180131
  Transmission Date: 20180509
  Serious: Yes (Other)
  Sender: FDA-Public Use
  Company Number: None

PATIENT
  Age: 44 Year
  Sex: Male
  Weight: 81.9 kg

DRUGS (4)
  1. LEVEMIR [Concomitant]
     Active Substance: INSULIN DETEMIR
  2. VITAMIN D [Concomitant]
     Active Substance: CHOLECALCIFEROL
  3. JANUVIA [Suspect]
     Active Substance: SITAGLIPTIN PHOSPHATE
     Indication: TYPE 2 DIABETES MELLITUS
     Dosage: ?          QUANTITY:30 TABLET(S);?
     Route: 048
     Dates: start: 20171222, end: 20180129
  4. ANTI-ACID MEDICATION [Concomitant]

REACTIONS (3)
  - Arthralgia [None]
  - Myalgia [None]
  - Quality of life decreased [None]

NARRATIVE: CASE EVENT DATE: 20180118
